FAERS Safety Report 8335143-3 (Version None)
Quarter: 2012Q2

REPORT INFORMATION
  Report Type: 
  Country: None (occurrence: None)
  Receive Date: 20120503
  Receipt Date: 20120423
  Transmission Date: 20120825
  Serious: Yes (Death)
  Sender: FDA-Public Use
  Company Number: US-MYLANLABS-2011S1021926

PATIENT
  Age: 49 Year
  Sex: Female

DRUGS (12)
  1. NEURONTIN [Concomitant]
  2. ATACAND [Concomitant]
  3. OXYCODONE HCL [Concomitant]
     Dosage: 1 - 1.5 PRN
  4. LEXAPRO [Concomitant]
     Route: 048
  5. COPAXONE [Concomitant]
  6. FENTANYL-100 [Suspect]
     Indication: PAIN
     Dosage: CHANGE Q3D
     Route: 062
     Dates: end: 20100312
  7. NUVIGIL [Concomitant]
  8. TIMOLOL MALEATE [Concomitant]
     Route: 047
  9. MIRALAX /00754501/ [Concomitant]
  10. CLONAZEPAM [Concomitant]
  11. TIZANIDINE HCL [Concomitant]
     Dosage: 2MG TABS TAKE 1 + 1/2 TID AND (3) HS
  12. TRAVATAN [Concomitant]
     Route: 047

REACTIONS (2)
  - OVERDOSE [None]
  - TOXICITY TO VARIOUS AGENTS [None]
